FAERS Safety Report 6760201-4 (Version None)
Quarter: 2010Q2

REPORT INFORMATION
  Report Type: 
  Country: None (occurrence: None)
  Receive Date: 20100608
  Receipt Date: 19990713
  Transmission Date: 20101027
  Serious: No
  Sender: FDA-Public Use
  Company Number: 1999SUS0825

PATIENT
  Sex: Female

DRUGS (1)
  1. SUSTIVA [Suspect]
     Indication: HIV INFECTION
     Dosage: UNK UNK
     Route: 048

REACTIONS (1)
  - PREGNANCY [None]
